FAERS Safety Report 8364139-0 (Version None)
Quarter: 2012Q2

REPORT INFORMATION
  Report Type: 
  Country: None (occurrence: None)
  Receive Date: 20120516
  Receipt Date: 20120508
  Transmission Date: 20120825
  Serious: Yes (Hospitalization, Disabling)
  Sender: FDA-Public Use
  Company Number: BR-ASTRAZENECA-2012SE30090

PATIENT
  Age: 53 Year
  Sex: Male
  Weight: 85 kg

DRUGS (7)
  1. JANUMET [Concomitant]
     Route: 048
  2. ZETIA [Concomitant]
     Route: 048
  3. VASOPRIL [Concomitant]
     Route: 048
  4. ASPIRIN PREVENT [Concomitant]
     Route: 048
  5. METOPROLOL SUCCINATE [Suspect]
     Indication: HYPERTENSION
     Route: 048
     Dates: start: 20060101
  6. CRESTOR [Suspect]
     Indication: DYSLIPIDAEMIA
     Route: 048
     Dates: start: 20060101, end: 20110801
  7. CRESTOR [Suspect]
     Route: 048
     Dates: start: 20120501

REACTIONS (3)
  - BLOOD CHOLESTEROL INCREASED [None]
  - FOOT FRACTURE [None]
  - PAIN IN EXTREMITY [None]
